FAERS Safety Report 4470112-5 (Version None)
Quarter: 2004Q3

REPORT INFORMATION
  Report Type: 
  Country: None (occurrence: None)
  Receive Date: 20040910
  Receipt Date: 20040709
  Transmission Date: 20050211
  Serious: No
  Sender: FDA-Public Use
  Company Number: 2004223176US

PATIENT
  Age: 67 Year
  Sex: Male
  Weight: 83.9 kg

DRUGS (1)
  1. BEXTRA [Suspect]
     Indication: BACK PAIN
     Dosage: 20 MG, QD, ORAL
     Route: 048
     Dates: start: 20040722

REACTIONS (2)
  - DIZZINESS [None]
  - DYSSTASIA [None]
